FAERS Safety Report 20211427 (Version 1)
Quarter: 2021Q4

REPORT INFORMATION
  Report Type: Spontaneous
  Country: US (occurrence: None)
  Receive Date: 20211220
  Receipt Date: 20211220
  Transmission Date: 20220303
  Serious: Yes (Other)
  Sender: FDA-Public Use
  Company Number: None

PATIENT
  Age: 25 Year
  Sex: Female
  Weight: 67.5 kg

DRUGS (3)
  1. BAMLANIVIMAB\ETESEVIMAB [Suspect]
     Active Substance: BAMLANIVIMAB\ETESEVIMAB
     Indication: COVID-19
     Dosage: FREQUENCY : ONCE;?
     Route: 041
     Dates: start: 20211220, end: 20211220
  2. BAMLANIVIMAB [Concomitant]
     Active Substance: BAMLANIVIMAB
  3. ETESEVIMAB [Concomitant]
     Active Substance: ETESEVIMAB
     Dates: end: 20211220

REACTIONS (2)
  - Hypersensitivity [None]
  - Oxygen saturation decreased [None]

NARRATIVE: CASE EVENT DATE: 20211220
